FAERS Safety Report 25796874 (Version 2)
Quarter: 2025Q3

REPORT INFORMATION
  Report Type: Spontaneous
  Country: JP (occurrence: JP)
  Receive Date: 20250912
  Receipt Date: 20250915
  Transmission Date: 20251021
  Serious: Yes (Death, Other)
  Sender: SANOFI AVENTIS
  Company Number: JP-MEIJISEIKA-202406299_P_1

PATIENT
  Age: 23 Year
  Sex: Male

DRUGS (12)
  1. REZUROCK [Suspect]
     Active Substance: BELUMOSUDIL
     Route: 048
     Dates: start: 2024
  2. REZUROCK [Suspect]
     Active Substance: BELUMOSUDIL
     Dosage: 200 MG, Q12H
     Route: 048
  3. PREDNISOLONE [Suspect]
     Active Substance: PREDNISOLONE
  4. VANCOMYCIN HYDROCHLORIDE [Suspect]
     Active Substance: VANCOMYCIN HYDROCHLORIDE
     Route: 042
  5. RUXOLITINIB [Concomitant]
     Active Substance: RUXOLITINIB
  6. INSULIN NOS [Concomitant]
     Active Substance: INSULIN NOS
     Indication: Diabetes mellitus
     Route: 065
  7. AMPHOTERICIN B [Concomitant]
     Active Substance: AMPHOTERICIN B
     Route: 065
  8. PIPERACILLIN SODIUM\TAZOBACTAM SODIUM [Concomitant]
     Active Substance: PIPERACILLIN SODIUM\TAZOBACTAM SODIUM
     Route: 065
  9. FLUCONAZOLE [Concomitant]
     Active Substance: FLUCONAZOLE
     Route: 065
  10. KEFLEX [Concomitant]
     Active Substance: CEPHALEXIN
     Route: 065
  11. CEFMETAZOLE SODIUM [Concomitant]
     Active Substance: CEFMETAZOLE SODIUM
     Indication: Bacteraemia
     Route: 065
  12. AMOXICILLIN\CLAVULANATE POTASSIUM [Concomitant]
     Active Substance: AMOXICILLIN\CLAVULANATE POTASSIUM
     Indication: Sinusitis

REACTIONS (8)
  - Leukaemia [Fatal]
  - Hepatitis [Recovered/Resolved]
  - Enterocolitis [Recovered/Resolved]
  - Diabetes mellitus [Unknown]
  - Bacteraemia [Recovered/Resolved]
  - Dyslipidaemia [Unknown]
  - Sinusitis [Recovered/Resolved]
  - Cytomegalovirus infection [Recovered/Resolved]
